FAERS Safety Report 11394806 (Version 2)
Quarter: 2015Q3

REPORT INFORMATION
  Report Type: Spontaneous
  Country: US (occurrence: US)
  Receive Date: 20150819
  Receipt Date: 20150827
  Transmission Date: 20151125
  Serious: Yes (Hospitalization, Other)
  Sender: FDA-Public Use
  Company Number: US-009507513-1203USA02670

PATIENT
  Sex: Female

DRUGS (3)
  1. FOSAMAX [Suspect]
     Active Substance: ALENDRONATE SODIUM
     Indication: BONE DENSITY DECREASED
     Dosage: 70 MG, UNK
     Route: 048
     Dates: start: 2000, end: 20061121
  2. BONIVA [Suspect]
     Active Substance: IBANDRONATE SODIUM
     Indication: BONE DENSITY DECREASED
     Dosage: 150 MG, UNK
     Route: 048
     Dates: start: 20061229, end: 20090307
  3. ZOMETA [Suspect]
     Active Substance: ZOLEDRONIC ACID
     Indication: BONE DENSITY DECREASED
     Dosage: UNK
     Route: 042
     Dates: start: 2009

REACTIONS (10)
  - Arthralgia [Unknown]
  - Dyslipidaemia [Unknown]
  - Pain in extremity [Unknown]
  - Medical device complication [Unknown]
  - Femur fracture [Unknown]
  - Arthralgia [Unknown]
  - Femur fracture [Unknown]
  - Hyperlipidaemia [Unknown]
  - Inflammation [Unknown]
  - Osteoporosis [Unknown]

NARRATIVE: CASE EVENT DATE: 20061220
